FAERS Safety Report 24208068 (Version 1)
Quarter: 2024Q3

REPORT INFORMATION
  Report Type: Spontaneous
  Country: CA (occurrence: CA)
  Receive Date: 20240814
  Receipt Date: 20240814
  Transmission Date: 20241017
  Serious: Yes (Other)
  Sender: CELLTRION
  Company Number: CA-CELLTRION INC.-2023CA025749

PATIENT

DRUGS (19)
  1. TRUXIMA [Suspect]
     Active Substance: RITUXIMAB-ABBS
     Indication: Rheumatoid arthritis
     Dosage: 1000 MG DAY1/DAY15
     Route: 042
     Dates: start: 20231003
  2. TRUXIMA [Suspect]
     Active Substance: RITUXIMAB-ABBS
     Dosage: 1000 MG INFUSION#1
     Route: 042
     Dates: start: 20231003
  3. TRUXIMA [Suspect]
     Active Substance: RITUXIMAB-ABBS
     Dosage: 1000 MG INFUSION#2
     Route: 042
     Dates: start: 20231003
  4. TRUXIMA [Suspect]
     Active Substance: RITUXIMAB-ABBS
     Dosage: 1000 MG, DAY 1 ONLY
     Route: 042
  5. TRUXIMA [Suspect]
     Active Substance: RITUXIMAB-ABBS
     Dosage: 1000 MG INFUSION#3 (DAY 1 AND 15)
     Route: 042
     Dates: start: 20231003
  6. ACETAMINOPHEN [Concomitant]
     Active Substance: ACETAMINOPHEN
     Indication: Premedication
     Dosage: 650 MG PO
     Route: 048
  7. BENADRYL [Concomitant]
     Active Substance: DIPHENHYDRAMINE HYDROCHLORIDE
     Indication: Premedication
     Dosage: 50 MG PO
     Route: 048
  8. SOLU-MEDROL [Concomitant]
     Active Substance: METHYLPREDNISOLONE SODIUM SUCCINATE
     Indication: Premedication
     Dosage: 100 MG IV
     Route: 042
  9. ATORVASTATIN [Concomitant]
     Active Substance: ATORVASTATIN
     Dosage: UNK
  10. METFORMIN [Concomitant]
     Active Substance: METFORMIN HYDROCHLORIDE
  11. CITROLIN [CITICOLINE] [Concomitant]
     Dosage: 200MG 1X/DAY
  12. ENALAPRIL [Concomitant]
     Active Substance: ENALAPRIL
     Dosage: 5 MG 2X DAILY (MORNING)
  13. OXYCONTIN [Concomitant]
     Active Substance: OXYCODONE HYDROCHLORIDE
     Indication: Premedication
     Dosage: 5/325 MG Q, 4 HRS
  14. OXYCONTIN [Concomitant]
     Active Substance: OXYCODONE HYDROCHLORIDE
     Dosage: 5/325 MG Q, 4 HRS
  15. CYANOCOBALAMIN [Concomitant]
     Active Substance: CYANOCOBALAMIN
     Dosage: 1200MC
  16. IRON [Concomitant]
     Active Substance: IRON
     Dosage: 300 MG
  17. TORVASTATIN [Concomitant]
     Dosage: 80 MG
  18. TYLENOL [Concomitant]
     Active Substance: ACETAMINOPHEN
     Indication: Premedication
     Dosage: UNK
  19. PREGABALIN [Concomitant]
     Active Substance: PREGABALIN
     Dosage: 200 MG

REACTIONS (16)
  - Blood pressure increased [Unknown]
  - Back injury [Unknown]
  - Hypoaesthesia oral [Recovering/Resolving]
  - Poor venous access [Unknown]
  - Oropharyngeal discomfort [Recovered/Resolved]
  - Headache [Recovered/Resolved]
  - Nausea [Recovered/Resolved]
  - Infusion related reaction [Recovered/Resolved]
  - Dizziness [Recovered/Resolved]
  - Pruritus [Recovered/Resolved]
  - Fatigue [Unknown]
  - Urinary tract infection [Recovered/Resolved]
  - Dizziness [Recovering/Resolving]
  - Nausea [Recovering/Resolving]
  - Headache [Recovering/Resolving]
  - Off label use [Unknown]

NARRATIVE: CASE EVENT DATE: 20231003
